FAERS Safety Report 21403732 (Version 1)
Quarter: 2022Q4

REPORT INFORMATION
  Report Type: Report from Study
  Country: US (occurrence: US)
  Receive Date: 20221003
  Receipt Date: 20221003
  Transmission Date: 20230113
  Serious: No
  Sender: FDA-Public Use
  Company Number: US-NOVARTISTESTPH-NVSC2022US222414

PATIENT
  Age: 87 Year

DRUGS (1)
  1. ENTRESTO [Suspect]
     Active Substance: SACUBITRIL\VALSARTAN
     Indication: Chronic left ventricular failure
     Dosage: 0.5 DOSAGE FORM, BID (24 MG)
     Route: 048
     Dates: start: 20220930

REACTIONS (2)
  - Wrong technique in product usage process [Unknown]
  - Underdose [Unknown]
